FAERS Safety Report 14371475 (Version 1)
Quarter: 2018Q1

REPORT INFORMATION
  Report Type: Spontaneous
  Country: US (occurrence: US)
  Receive Date: 20180110
  Receipt Date: 20180110
  Transmission Date: 20180509
  Serious: No
  Sender: FDA-Public Use
  Company Number: US-TEVA-2018-US-844029

PATIENT

DRUGS (3)
  1. DAPTOMYCIN. [Concomitant]
     Active Substance: DAPTOMYCIN
     Indication: LOCALISED INFECTION
     Dosage: 1000 MILLIGRAM DAILY;
     Route: 042
     Dates: start: 20171103, end: 20171106
  2. OXYBUTYNIN. [Suspect]
     Active Substance: OXYBUTYNIN CHLORIDE
     Route: 065
  3. INSULIN GLARGINE [Concomitant]
     Active Substance: INSULIN GLARGINE
     Indication: TYPE 2 DIABETES MELLITUS
     Dosage: 18 IU (INTERNATIONAL UNIT) DAILY;
     Dates: start: 20171101

REACTIONS (2)
  - Drug hypersensitivity [Unknown]
  - Hypotension [Unknown]
